FAERS Safety Report 9147959 (Version 1)
Quarter: 2013Q1

REPORT INFORMATION
  Report Type: Spontaneous
  Country: US (occurrence: US)
  Receive Date: 20130228
  Receipt Date: 20130228
  Transmission Date: 20140127
  Serious: Yes (Hospitalization, Other)
  Sender: FDA-Public Use
  Company Number: US-RB-050198-13

PATIENT
  Age: 46 Year
  Sex: Male

DRUGS (2)
  1. MUCINEX [Suspect]
     Indication: BRONCHITIS
     Dosage: TOOK AN UNKNOWN AMOUNT TWICE. LAST TOOK ON 14-FEB-2013
     Route: 048
  2. AMOXICILLIN [Suspect]
     Indication: BRONCHITIS

REACTIONS (2)
  - Confusional state [Recovered/Resolved]
  - Off label use [Recovered/Resolved]
